FAERS Safety Report 7521551-7 (Version None)
Quarter: 2011Q2

REPORT INFORMATION
  Report Type: 
  Country: None (occurrence: None)
  Receive Date: 20110603
  Receipt Date: 20110531
  Transmission Date: 20111010
  Serious: No
  Sender: FDA-Public Use
  Company Number: US-PFIZER INC-2011118466

PATIENT
  Sex: Female

DRUGS (1)
  1. CELEBREX [Suspect]
     Dosage: UNK
     Route: 048
     Dates: start: 20110101

REACTIONS (4)
  - SKIN IRRITATION [None]
  - ERYTHEMA [None]
  - PHOTOSENSITIVITY REACTION [None]
  - BURNING SENSATION [None]
